FAERS Safety Report 6405814-4 (Version None)
Quarter: 2009Q4

REPORT INFORMATION
  Report Type: 
  Country: None (occurrence: None)
  Receive Date: 20091016
  Receipt Date: 20091016
  Transmission Date: 20100525
  Serious: Yes (Hospitalization)
  Sender: FDA-Public Use
  Company Number: None

PATIENT
  Sex: Female
  Weight: 76.8 kg

DRUGS (1)
  1. LEVAQUIN [Suspect]
     Indication: DIVERTICULITIS
     Dosage: I IV BAG OF LEVAQUIN SEVERAL BAGS DURIN THE DAY
     Dates: start: 20090704, end: 20090708

REACTIONS (5)
  - ABASIA [None]
  - INJURY [None]
  - NEUROPATHY PERIPHERAL [None]
  - OEDEMA PERIPHERAL [None]
  - TENDONITIS [None]
